FAERS Safety Report 8199336-0 (Version None)
Quarter: 2012Q1

REPORT INFORMATION
  Report Type: 
  Country: None (occurrence: None)
  Receive Date: 20120309
  Receipt Date: 20120307
  Transmission Date: 20120608
  Serious: Yes (Life-Threatening)
  Sender: FDA-Public Use
  Company Number: GXKR2009GB05117

PATIENT
  Age: 57 Year
  Sex: Female
  Weight: 65 kg

DRUGS (9)
  1. MAGNESIUM [Concomitant]
  2. OREGANO OIL [Concomitant]
  3. GARLIC OIL ESSENTIAL [Concomitant]
  4. ACETAMINOPHEN [Concomitant]
  5. MENOPACE [Concomitant]
  6. BENDROFLUMETHIAZIDE [Interacting]
     Indication: HYPERTENSION
     Dosage: 2.5 MG, QD
     Route: 048
     Dates: start: 20050101, end: 20090205
  7. METRONIDAZOLE [Interacting]
     Indication: PROPHYLAXIS
     Dosage: 200 MG, TID
     Route: 048
     Dates: start: 20090202, end: 20090205
  8. RAMIPRIL [Interacting]
     Indication: HYPERTENSION
     Dosage: 2.5 MG, QD
     Route: 048
     Dates: start: 20060101, end: 20090205
  9. CITALOPRAM HYDROBROMIDE [Suspect]
     Indication: DEPRESSION
     Dosage: 20 MG, UNK
     Route: 048
     Dates: start: 20090202, end: 20090205

REACTIONS (9)
  - OSMOTIC DEMYELINATION SYNDROME [None]
  - FEELING HOT [None]
  - HYPONATRAEMIA [None]
  - VOMITING [None]
  - DRUG INTERACTION [None]
  - THIRST [None]
  - CONVULSION [None]
  - MEMORY IMPAIRMENT [None]
  - GAIT DISTURBANCE [None]
